FAERS Safety Report 19405327 (Version 2)
Quarter: 2021Q2

REPORT INFORMATION
  Report Type: Report from Study
  Country: BR (occurrence: BR)
  Receive Date: 20210611
  Receipt Date: 20210620
  Transmission Date: 20210717
  Serious: Yes (Life-Threatening, Hospitalization, Other)
  Sender: FDA-Public Use
  Company Number: BR-JNJFOC-20210618339

PATIENT
  Age: 53 Year
  Sex: Male

DRUGS (11)
  1. DOMPERIDONE [Concomitant]
     Active Substance: DOMPERIDONE
  2. SIMVASTATIN. [Concomitant]
     Active Substance: SIMVASTATIN
  3. BISOPROLOL [Concomitant]
     Active Substance: BISOPROLOL
  4. CLINDAMYCIN. [Concomitant]
     Active Substance: CLINDAMYCIN
  5. SUCRALFATE. [Concomitant]
     Active Substance: SUCRALFATE
  6. VITAMIN D [ERGOCALCIFEROL] [Concomitant]
     Active Substance: ERGOCALCIFEROL
  7. SIMPONI [Suspect]
     Active Substance: GOLIMUMAB
     Indication: ANKYLOSING SPONDYLITIS
     Route: 058
     Dates: start: 20180209
  8. ASCORBIC ACID. [Concomitant]
     Active Substance: ASCORBIC ACID
  9. AZITHROMYCIN ANHYDROUS. [Concomitant]
     Active Substance: AZITHROMYCIN ANHYDROUS
  10. BROMOPRIDE [Concomitant]
     Active Substance: BROMOPRIDE
  11. PLASIL [METOCLOPRAMIDE] [Concomitant]
     Active Substance: METOCLOPRAMIDE

REACTIONS (5)
  - Cardio-respiratory arrest [Unknown]
  - Arthritis [Unknown]
  - COVID-19 [Recovered/Resolved]
  - Adverse event [Unknown]
  - Syncope [Unknown]

NARRATIVE: CASE EVENT DATE: 2020
